FAERS Safety Report 4316094-8 (Version None)
Quarter: 2004Q1

REPORT INFORMATION
  Report Type: 
  Country: None (occurrence: None)
  Receive Date: 20040310
  Receipt Date: 20040304
  Transmission Date: 20041129
  Serious: Yes (Hospitalization)
  Sender: FDA-Public Use
  Company Number: FRWYE578912FEB04

PATIENT
  Age: 50 Year
  Sex: Female

DRUGS (3)
  1. RAPAMUNE [Suspect]
     Indication: PROPHYLAXIS AGAINST TRANSPLANT REJECTION
     Dosage: 3 MG DAILY AT THE TIME OF THE EVENT ONSET, ORAL
     Route: 048
     Dates: start: 20020819
  2. CELLCEPT [Suspect]
     Indication: PROPHYLAXIS AGAINST TRANSPLANT REJECTION
     Dosage: 1.5 G DAILY AT THE TIME OF THE EVENT ONSET, ORAL
     Route: 048
     Dates: start: 20020818
  3. PREDNISONE [Concomitant]

REACTIONS (3)
  - BK VIRUS INFECTION [None]
  - BLOOD CREATININE INCREASED [None]
  - NEPHRITIS INTERSTITIAL [None]
